FAERS Safety Report 25989745 (Version 1)
Quarter: 2025Q4

REPORT INFORMATION
  Report Type: Spontaneous
  Country: VN (occurrence: VN)
  Receive Date: 20251103
  Receipt Date: 20251103
  Transmission Date: 20260117
  Serious: Yes (Hospitalization, Other)
  Sender: BAYER HEALTHCARE PHARMACEUTICALS INC.
  Company Number: VN-BAYER-2025A079921

PATIENT
  Age: 37 Year
  Sex: Female
  Weight: 40 kg

DRUGS (1)
  1. ULTRAVIST [Suspect]
     Active Substance: IOPROMIDE
     Indication: Computerised tomogram abdomen
     Dosage: 77 ML, ONCE
     Route: 042
     Dates: start: 20250612, end: 20250612

REACTIONS (6)
  - Anaphylactic shock [None]
  - Nausea [Unknown]
  - Dyspnoea [Unknown]
  - Blood pressure immeasurable [Unknown]
  - Cyanosis [Unknown]
  - Pulse absent [Unknown]

NARRATIVE: CASE EVENT DATE: 20250612
